FAERS Safety Report 9039068 (Version 2)
Quarter: 2013Q3

REPORT INFORMATION
  Report Type: Spontaneous
  Country: US (occurrence: US)
  Receive Date: 20130129
  Receipt Date: 20130816
  Transmission Date: 20140515
  Serious: Yes (Hospitalization, Other)
  Sender: FDA-Public Use
  Company Number: US-MERCK-1301USA013226

PATIENT
  Sex: Male
  Weight: 87.12 kg

DRUGS (26)
  1. FOSAMAX [Suspect]
     Indication: OSTEOPOROSIS
     Dosage: 70 MG, WEEKLY
     Route: 048
     Dates: start: 20040630
  2. FOSAMAX [Suspect]
     Indication: OSTEOPENIA
     Dosage: 10 MG, PO QAM
     Route: 048
     Dates: start: 20040629
  3. ALENDRONATE SODIUM [Suspect]
     Indication: OSTEOPOROSIS
     Dosage: 70 MG, UNK
     Route: 048
     Dates: start: 20080225, end: 20100815
  4. CALCIUM (UNSPECIFIED) [Concomitant]
     Dosage: 500-1500 MG DAILY
     Dates: start: 2004
  5. TOPICORT (DESOXIMETASONE) [Concomitant]
     Indication: ECZEMA
     Dosage: 25 %, 1-2 QD PRN
  6. CALCITONIN [Concomitant]
     Indication: OSTEOPOROSIS
     Dosage: ONE SQUIRT ONE NOSTRIL QD, ALTERNATE NOSTRILS
     Dates: start: 20100727
  7. SUDAFED [Concomitant]
     Indication: EUSTACHIAN TUBE DYSFUNCTION
     Dosage: 60 MG, BID
     Dates: start: 20040629
  8. ZYRTEC [Concomitant]
     Indication: EUSTACHIAN TUBE DYSFUNCTION
  9. CIALIS [Concomitant]
     Indication: SEXUAL DYSFUNCTION
     Dosage: 20 MG, PRN
     Dates: start: 20040629
  10. NASACORT [Concomitant]
     Dosage: 55 MCG/ACT
     Route: 045
  11. PRINIVIL [Concomitant]
     Dosage: 5 MG, DAILY
     Route: 048
  12. MECLIZINE HYDROCHLORIDE [Concomitant]
     Indication: VERTIGO
     Dosage: 12.5-75 MG PRN
  13. DIAZEPAM [Concomitant]
     Indication: ANXIETY
     Dosage: 5 MG, QD PRN
  14. DIAZEPAM [Concomitant]
     Indication: INSOMNIA
  15. LIBRAX CAPSULES [Concomitant]
     Dosage: 2.5-5 MG, TID PRN
  16. CORTISPORIN OTIC [Concomitant]
     Dosage: 4 GTTS BID PRN
  17. METAMUCIL [Concomitant]
     Indication: IRRITABLE BOWEL SYNDROME
     Dosage: 1 TBSP QID
  18. LIPITOR [Concomitant]
     Indication: DYSLIPIDAEMIA
     Dosage: 10 MG, QD
  19. KLARON [Concomitant]
     Indication: ACNE
     Dosage: 10%, BID PRN
  20. NAPROSYN EC [Concomitant]
     Dosage: 500 MG, PRN
  21. CHONDROITIN SULFATE SODIUM [Concomitant]
     Dosage: 500 MG, TID
     Route: 048
  22. ASPIRIN [Concomitant]
     Dosage: 81-325 MG QD
     Route: 048
  23. PRILOSEC [Concomitant]
     Dosage: 20 MG, BID
  24. ACLOVATE [Concomitant]
     Dosage: APPLY TO EARS QD
  25. ALLEGRA [Concomitant]
     Dosage: 180 MG, QD
  26. VITAMIN E [Concomitant]
     Dosage: 200-400 IU QD

REACTIONS (41)
  - Femur fracture [Unknown]
  - Intramedullary rod insertion [Unknown]
  - Femur fracture [Unknown]
  - Open reduction of fracture [Unknown]
  - Internal fixation of fracture [Unknown]
  - Knee arthroplasty [Unknown]
  - Debridement [Unknown]
  - Toe operation [Unknown]
  - Cholecystectomy [Unknown]
  - Hypotension [Unknown]
  - Knee operation [Unknown]
  - Spinal osteoarthritis [Unknown]
  - Spinal compression fracture [Unknown]
  - Hypertension [Unknown]
  - Peptic ulcer [Unknown]
  - Adenotonsillectomy [Unknown]
  - Prostatitis [Not Recovered/Not Resolved]
  - Osteoarthritis [Unknown]
  - Rib fracture [Unknown]
  - Aortic dilatation [Unknown]
  - Fall [Unknown]
  - Fall [Unknown]
  - Diverticulum intestinal [Unknown]
  - Diverticulum intestinal haemorrhagic [Unknown]
  - Intervertebral disc disorder [Unknown]
  - Meniere^s disease [Unknown]
  - Hyponatraemia [Unknown]
  - Intervertebral disc protrusion [Unknown]
  - Pharyngo-oesophageal diverticulum [Unknown]
  - Gastrointestinal haemorrhage [Unknown]
  - Skin exfoliation [Unknown]
  - Tympanic membrane hyperaemia [Unknown]
  - Fracture displacement [Unknown]
  - Device dislocation [Unknown]
  - Joint contracture [Unknown]
  - Asthenia [Unknown]
  - Arthralgia [Unknown]
  - Gastrooesophageal reflux disease [Unknown]
  - Pain in extremity [Unknown]
  - Gastritis [Unknown]
  - Oedema peripheral [Unknown]
